FAERS Safety Report 6214026-9 (Version None)
Quarter: 2009Q2

REPORT INFORMATION
  Report Type: 
  Country: None (occurrence: None)
  Receive Date: 20090604
  Receipt Date: 20090527
  Transmission Date: 20091009
  Serious: Yes (Other)
  Sender: FDA-Public Use
  Company Number: US-JNJFOC-20090202491

PATIENT
  Sex: Female
  Weight: 83.92 kg

DRUGS (2)
  1. REMICADE [Suspect]
     Dosage: DOSE: 9 VIALS
     Route: 042
  2. REMICADE [Suspect]
     Indication: CROHN'S DISEASE
     Dosage: UNKNOWN NUMBER OF INFUSIONS ON UNKNOWN DATES
     Route: 042

REACTIONS (2)
  - ALOPECIA [None]
  - DERMATITIS [None]
